FAERS Safety Report 16090138 (Version 1)
Quarter: 2019Q1

REPORT INFORMATION
  Report Type: Spontaneous
  Country: US (occurrence: US)
  Receive Date: 20190319
  Receipt Date: 20190319
  Transmission Date: 20190418
  Serious: No
  Sender: FDA-Public Use
  Company Number: US-SA-2019SA071596

PATIENT
  Weight: 102.1 kg

DRUGS (1)
  1. APIDRA [Suspect]
     Active Substance: INSULIN GLULISINE
     Dosage: UNK UNK, UNK

REACTIONS (2)
  - Swelling [Unknown]
  - Drug hypersensitivity [Unknown]
